FAERS Safety Report 9144899 (Version 2)
Quarter: 2013Q2

REPORT INFORMATION
  Report Type: Spontaneous
  Country: US (occurrence: US)
  Receive Date: 20130307
  Receipt Date: 20130403
  Transmission Date: 20140414
  Serious: No
  Sender: FDA-Public Use
  Company Number: US-009507513-1302USA013264

PATIENT
  Age: 56 Year
  Sex: Male
  Weight: 89.34 kg

DRUGS (6)
  1. PEGINTRON [Suspect]
     Dosage: UNK
     Dates: start: 2010
  2. PEGINTRON [Suspect]
     Dosage: 150 MICROGRAM, QW
     Route: 058
  3. RIBAPAK [Suspect]
     Dosage: 1200/DAY
  4. VICTRELIS [Suspect]
     Route: 048
  5. LISINOPRIL [Concomitant]
  6. KEPPRA [Concomitant]

REACTIONS (2)
  - Therapy responder [Unknown]
  - Influenza like illness [Not Recovered/Not Resolved]
